FAERS Safety Report 15047918 (Version 6)
Quarter: 2018Q4

REPORT INFORMATION
  Report Type: Report from Study
  Country: None (occurrence: CA)
  Receive Date: 20180621
  Receipt Date: 20181212
  Transmission Date: 20190204
  Serious: Yes (Hospitalization, Congenital Anomaly, Other)
  Sender: FDA-Public Use
  Company Number: CA-ABBVIE-18K-028-2391533-00

PATIENT
  Sex: Male

DRUGS (1)
  1. HUMIRA [Suspect]
     Active Substance: ADALIMUMAB
     Indication: MATERNAL EXPOSURE TIMING UNSPECIFIED
     Route: 064

REACTIONS (8)
  - Congenital hand malformation [Not Recovered/Not Resolved]
  - Cleft lip [Not Recovered/Not Resolved]
  - Congenital pancreatic anomaly [Recovering/Resolving]
  - Nausea [Unknown]
  - Foetal exposure during pregnancy [Unknown]
  - Cleft palate [Not Recovered/Not Resolved]
  - Foot deformity [Unknown]
  - Gastrooesophageal reflux disease [Unknown]

NARRATIVE: CASE EVENT DATE: 2018
